FAERS Safety Report 12100133 (Version 3)
Quarter: 2020Q4

REPORT INFORMATION
  Report Type: Spontaneous
  Country: HU (occurrence: HU)
  Receive Date: 20160222
  Receipt Date: 20201217
  Transmission Date: 20210113
  Serious: Yes (Hospitalization, Other)
  Sender: FDA-Public Use
  Company Number: PHHY2016HU021620

PATIENT
  Age: 27 Year
  Sex: Female

DRUGS (2)
  1. DIAPHYLLIN [Suspect]
     Active Substance: AMINOPHYLLINE
     Indication: POLYHYDRAMNIOS
     Dosage: UNK
     Route: 065
  2. BISOPROLOL FUMARATE. [Suspect]
     Active Substance: BISOPROLOL FUMARATE
     Indication: PROPHYLAXIS
     Dosage: 2.5 MG, QD
     Route: 048

REACTIONS (3)
  - Polyhydramnios [Recovered/Resolved]
  - Maternal exposure during pregnancy [Unknown]
  - Live birth [Recovered/Resolved]
